FAERS Safety Report 15579680 (Version 1)
Quarter: 2018Q4

REPORT INFORMATION
  Report Type: Spontaneous
  Country: US (occurrence: US)
  Receive Date: 20181102
  Receipt Date: 20181102
  Transmission Date: 20190205
  Serious: No
  Sender: FDA-Public Use
  Company Number: US-TARO-2017TAR00977

PATIENT
  Age: 86 Year
  Sex: Male
  Weight: 65.76 kg

DRUGS (10)
  1. METAMUCIL [Concomitant]
     Active Substance: PLANTAGO SEED
  2. TAMSULOSIN [Concomitant]
     Active Substance: TAMSULOSIN
  3. TRIAMCINOLONE ACETONIDE DENTAL PASTE USP 0.1% [Suspect]
     Active Substance: TRIAMCINOLONE ACETONIDE
     Indication: ORAL LICHEN PLANUS
     Dosage: UNK, 3X/DAY
     Route: 061
     Dates: start: 20171016, end: 201711
  4. GALANTAMINE. [Concomitant]
     Active Substance: GALANTAMINE
  5. TRIAMCINOLONE ACETONIDE DENTAL PASTE USP 0.1% [Suspect]
     Active Substance: TRIAMCINOLONE ACETONIDE
     Dosage: UNK, 3X/DAY
     Route: 061
     Dates: start: 20171116
  6. BUPROPION. [Concomitant]
     Active Substance: BUPROPION
  7. LEVOTHYROXINE. [Concomitant]
     Active Substance: LEVOTHYROXINE
  8. VITAMIN D3 [Concomitant]
     Active Substance: CHOLECALCIFEROL
  9. ASPIRIN. [Concomitant]
     Active Substance: ASPIRIN
  10. USPECIFIED ORAL LIQUID MOUTH WASH [Concomitant]
     Route: 048

REACTIONS (4)
  - Product use issue [Recovered/Resolved]
  - Drug ineffective [Unknown]
  - Product quality issue [Recovering/Resolving]
  - Product storage error [Recovered/Resolved]

NARRATIVE: CASE EVENT DATE: 20171016
